FAERS Safety Report 16412729 (Version 2)
Quarter: 2019Q2

REPORT INFORMATION
  Report Type: Report from Study
  Country: US (occurrence: US)
  Receive Date: 20190611
  Receipt Date: 20190613
  Transmission Date: 20190711
  Serious: No
  Sender: FDA-Public Use
  Company Number: PHEH2019US024000

PATIENT
  Sex: Male

DRUGS (1)
  1. AFINITOR DISPERZ [Suspect]
     Active Substance: EVEROLIMUS
     Indication: SEIZURE
     Dosage: 3 MG, QD
     Route: 048
     Dates: start: 20190425

REACTIONS (1)
  - Epistaxis [Not Recovered/Not Resolved]
